FAERS Safety Report 4621020-8 (Version None)
Quarter: 2005Q1

REPORT INFORMATION
  Report Type: 
  Country: None (occurrence: None)
  Receive Date: 20050325
  Receipt Date: 20050314
  Transmission Date: 20050727
  Serious: Yes (Death)
  Sender: FDA-Public Use
  Company Number: GXKR2005GB00766

PATIENT
  Age: 25 Year
  Sex: Male

DRUGS (4)
  1. PROPANOLOL            (PROPANOLOL) [Suspect]
  2. VIAGRA [Suspect]
  3. ANABOLIC STEROIDS(NO INGREDIENTS/SUBSTANCES) [Suspect]
  4. COCAINE(COCAINE) [Suspect]

REACTIONS (2)
  - SELF-MEDICATION [None]
  - SUDDEN DEATH [None]
